FAERS Safety Report 11070737 (Version 2)
Quarter: 2015Q3

REPORT INFORMATION
  Report Type: Spontaneous
  Country: US (occurrence: US)
  Receive Date: 20150427
  Receipt Date: 20150915
  Transmission Date: 20151125
  Serious: No
  Sender: FDA-Public Use
  Company Number: US-GILEAD-2015-0150574

PATIENT
  Age: 69 Year
  Sex: Male

DRUGS (2)
  1. ZYDELIG [Suspect]
     Active Substance: IDELALISIB
     Dosage: UNK UNKNOWN, UNK
     Route: 048
     Dates: start: 201501
  2. ZYDELIG [Suspect]
     Active Substance: IDELALISIB
     Indication: NON-HODGKIN^S LYMPHOMA
     Dosage: 150 MG, BID
     Route: 048
     Dates: start: 20150106

REACTIONS (11)
  - Pollakiuria [Unknown]
  - Dry mouth [Unknown]
  - Pain in jaw [Unknown]
  - Headache [Unknown]
  - Dysphagia [Unknown]
  - Tongue coated [Unknown]
  - Dry throat [Unknown]
  - Odynophagia [Unknown]
  - Facial pain [Unknown]
  - Neck pain [Unknown]
  - Glossodynia [Unknown]
